FAERS Safety Report 19579415 (Version 2)
Quarter: 2021Q3

REPORT INFORMATION
  Report Type: Spontaneous
  Country: US (occurrence: US)
  Receive Date: 20210719
  Receipt Date: 20210802
  Transmission Date: 20211014
  Serious: Yes (Hospitalization, Other)
  Sender: FDA-Public Use
  Company Number: US-ALKERMES INC.-ALK-2021-003692

PATIENT
  Age: 41 Year
  Sex: Female
  Weight: 61.22 kg

DRUGS (2)
  1. VIVITROL [Suspect]
     Active Substance: NALTREXONE
     Dosage: 380 MILLIGRAM, QMO
     Route: 030
  2. VIVITROL [Suspect]
     Active Substance: NALTREXONE
     Indication: ALCOHOLISM
     Dosage: 380 MILLIGRAM, QMO
     Route: 030
     Dates: start: 20210609

REACTIONS (19)
  - Injection site mass [Unknown]
  - Injection site pain [Unknown]
  - Scratch [Unknown]
  - Injection site discharge [Unknown]
  - Dry skin [Unknown]
  - Injection site erythema [Unknown]
  - Injection site infection [Unknown]
  - Injection site injury [Unknown]
  - Injection site swelling [Unknown]
  - Injection site reaction [Unknown]
  - Injection site irritation [Unknown]
  - Injection site cellulitis [Unknown]
  - Injection site necrosis [Recovered/Resolved]
  - Product quality issue [Recovered/Resolved]
  - Injection site nodule [Unknown]
  - Injection site warmth [Unknown]
  - Injection site induration [Unknown]
  - Injection site pruritus [Unknown]
  - Injection site inflammation [Unknown]

NARRATIVE: CASE EVENT DATE: 202106
